FAERS Safety Report 21319807 (Version 1)
Quarter: 2022Q3

REPORT INFORMATION
  Report Type: Spontaneous
  Country: US (occurrence: US)
  Receive Date: 20220911
  Receipt Date: 20220911
  Transmission Date: 20221027
  Serious: No
  Sender: FDA-Public Use
  Company Number: US-SANOFI-01255555

PATIENT
  Age: 86 Year
  Sex: Female

DRUGS (1)
  1. LANTUS SOLOSTAR [Suspect]
     Active Substance: INSULIN GLARGINE
     Indication: Type 2 diabetes mellitus
     Dosage: UNK UNK, QID, 5 UNITS TID, 20 UNITS NIGHTLY }QID AND DRUG TREATMENT DURATION:2 YEARS
     Dates: start: 2020

REACTIONS (1)
  - Inappropriate schedule of product administration [Unknown]
